FAERS Safety Report 12433681 (Version 3)
Quarter: 2016Q3

REPORT INFORMATION
  Report Type: Spontaneous
  Country: US (occurrence: US)
  Receive Date: 20160603
  Receipt Date: 20160822
  Transmission Date: 20161109
  Serious: No
  Sender: FDA-Public Use
  Company Number: US-JNJFOC-20160513183

PATIENT

DRUGS (1)
  1. INVEGA TRINZA [Suspect]
     Active Substance: PALIPERIDONE PALMITATE
     Indication: PRODUCT USED FOR UNKNOWN INDICATION
     Route: 030
     Dates: start: 2016

REACTIONS (4)
  - Aggression [Unknown]
  - Agitation [Unknown]
  - Drug effect decreased [Unknown]
  - Anger [Unknown]

NARRATIVE: CASE EVENT DATE: 2016
